FAERS Safety Report 9831557 (Version 1)
Quarter: 2014Q1

REPORT INFORMATION
  Report Type: Spontaneous
  Country: TR (occurrence: TR)
  Receive Date: 20140121
  Receipt Date: 20140121
  Transmission Date: 20141002
  Serious: Yes (Other)
  Sender: FDA-Public Use
  Company Number: TR-TEVA-457263ISR

PATIENT
  Sex: 0

DRUGS (2)
  1. ETOPOSIDE [Suspect]
     Dosage: 1.6 GR/M2
  2. GRANULOCYTE COLONY-STIMULATING FACTOR NOS [Suspect]
     Dosage: 300 MICROGRAM/DAY

REACTIONS (1)
  - Acute myeloid leukaemia [Unknown]
